FAERS Safety Report 9782710 (Version 1)
Quarter: 2013Q4

REPORT INFORMATION
  Report Type: Spontaneous
  Country: US (occurrence: None)
  Receive Date: 20131220
  Receipt Date: 20131220
  Transmission Date: 20140711
  Serious: Yes (Hospitalization)
  Sender: FDA-Public Use
  Company Number: 1954843

PATIENT
  Age: 62 Year
  Sex: Female

DRUGS (2)
  1. CARBOPLATIN [Suspect]
     Indication: OVARIAN CANCER
     Route: 042
     Dates: start: 20120228, end: 20120228
  2. ENDOXAN [Concomitant]

REACTIONS (7)
  - Tremor [None]
  - Cyanosis [None]
  - Chills [None]
  - Dyspnoea [None]
  - Heart rate increased [None]
  - Body temperature increased [None]
  - Blood pressure systolic increased [None]
